FAERS Safety Report 7150195-4 (Version None)
Quarter: 2010Q4

REPORT INFORMATION
  Report Type: 
  Country: None (occurrence: None)
  Receive Date: 20101207
  Receipt Date: 20101207
  Transmission Date: 20110411
  Serious: Yes (Other)
  Sender: FDA-Public Use
  Company Number: None

PATIENT
  Age: 7 Year
  Sex: Male
  Weight: 19.5047 kg

DRUGS (1)
  1. FLUTICASONE PROPIONATE [Suspect]
     Indication: CHRONIC SINUSITIS
     Dosage: 1 SPRAY, EACH NOSTRIL DAILY NASAL
     Route: 045
     Dates: start: 20100929, end: 20101124

REACTIONS (6)
  - ADJUSTMENT DISORDER [None]
  - ANXIETY [None]
  - EDUCATIONAL PROBLEM [None]
  - OBSESSIVE THOUGHTS [None]
  - SCHOOL REFUSAL [None]
  - SELF-INJURIOUS IDEATION [None]
